FAERS Safety Report 22216371 (Version 4)
Quarter: 2024Q1

REPORT INFORMATION
  Report Type: Report from Study
  Country: US (occurrence: US)
  Receive Date: 20230417
  Receipt Date: 20240103
  Transmission Date: 20240410
  Serious: Yes (Other)
  Sender: FDA-Public Use
  Company Number: US-KOREA IPSEN Pharma-2023-08840

PATIENT
  Age: 77 Year
  Sex: Male

DRUGS (1)
  1. SOMATULINE DEPOT [Suspect]
     Active Substance: LANREOTIDE ACETATE
     Indication: Neuroendocrine tumour
     Dosage: 120 MG EVERY 4 WEEKS (28 DAYS)
     Route: 058
     Dates: start: 20230110

REACTIONS (18)
  - Loss of consciousness [Recovering/Resolving]
  - Haemorrhage [Recovering/Resolving]
  - Cerebrovascular accident [Recovered/Resolved]
  - Cerebral thrombosis [Not Recovered/Not Resolved]
  - Hypotension [Not Recovered/Not Resolved]
  - Injection site pain [Not Recovered/Not Resolved]
  - Orthostatic hypotension [Recovering/Resolving]
  - Blood creatinine increased [Not Recovered/Not Resolved]
  - Dehydration [Recovering/Resolving]
  - Fall [Not Recovered/Not Resolved]
  - Balance disorder [Recovering/Resolving]
  - Skin laceration [Not Recovered/Not Resolved]
  - Feeling abnormal [Recovering/Resolving]
  - Diarrhoea [Recovered/Resolved]
  - Asthenia [Recovering/Resolving]
  - Dizziness [Not Recovered/Not Resolved]
  - Nausea [Recovered/Resolved]
  - Syringe issue [Unknown]

NARRATIVE: CASE EVENT DATE: 20230101
